FAERS Safety Report 6587904-9 (Version None)
Quarter: 2010Q1

REPORT INFORMATION
  Report Type: 
  Country: None (occurrence: None)
  Receive Date: 20100217
  Receipt Date: 20100217
  Transmission Date: 20100710
  Serious: No
  Sender: FDA-Public Use
  Company Number: None

PATIENT
  Age: 25 Year
  Sex: Male
  Weight: 74.8435 kg

DRUGS (1)
  1. CIPROFLAXIN 500MG COBALT LABS [Suspect]
     Indication: SINUSITIS
     Dosage: 500MG TWICE A DAY PO
     Route: 048
     Dates: start: 20100209, end: 20100211

REACTIONS (2)
  - BACK PAIN [None]
  - PAIN [None]
